FAERS Safety Report 8785607 (Version 1)
Quarter: 2012Q4

REPORT INFORMATION
  Report Type: Spontaneous
  Country: DK (occurrence: None)
  Receive Date: 20120831
  Receipt Date: 20120831
  Transmission Date: 20130627
  Serious: Yes (Other)
  Sender: FDA-Public Use
  Company Number: 2012MA010580

PATIENT
  Age: 45 Year
  Sex: Male

DRUGS (2)
  1. VENLAFAXINE HYDROCHLORIDE [Suspect]
     Indication: MENTAL DISORDER
     Route: 048
     Dates: start: 20120601
  2. ZOPICLONE [Suspect]
     Indication: INSOMNIA
     Route: 048
     Dates: start: 20120805, end: 20120805

REACTIONS (6)
  - Vomiting [None]
  - Gastric pH decreased [None]
  - Depersonalisation [None]
  - Derealisation [None]
  - Tooth discolouration [None]
  - Somnolence [None]
